FAERS Safety Report 23518872 (Version 5)
Quarter: 2025Q3

REPORT INFORMATION
  Report Type: Spontaneous
  Country: US (occurrence: US)
  Receive Date: 20240213
  Receipt Date: 20250827
  Transmission Date: 20251020
  Serious: Yes (Other)
  Sender: PFIZER
  Company Number: US-PFIZER INC-202400040124

PATIENT
  Age: 70 Year
  Sex: Female
  Weight: 101.6 kg

DRUGS (1)
  1. XELJANZ XR [Suspect]
     Active Substance: TOFACITINIB CITRATE
     Indication: Rheumatoid arthritis
     Dosage: 11 MG, 1X/DAY
     Dates: start: 202401

REACTIONS (2)
  - Deep vein thrombosis [Unknown]
  - Pulmonary thrombosis [Unknown]
